FAERS Safety Report 4575345-5 (Version None)
Quarter: 2005Q2

REPORT INFORMATION
  Report Type: 
  Country: None (occurrence: None)
  Receive Date: 20050127
  Receipt Date: 20050127
  Transmission Date: 20051028
  Serious: No
  Sender: FDA-Public Use
  Company Number: None

PATIENT
  Sex: Female
  Weight: 98.8842 kg

DRUGS (9)
  1. PROPOFOL [Suspect]
     Indication: ANAESTHESIA
     Dosage: 150 MG IV
     Route: 042
     Dates: start: 20050124
  2. LOPID [Concomitant]
  3. COLACE [Concomitant]
  4. ROBINOL [Concomitant]
  5. ALBUTEROL [Concomitant]
  6. VISTARIL [Concomitant]
  7. PHENERGAN [Concomitant]
  8. MOTRIN [Concomitant]
  9. DEXTROMETHOPHAN [Concomitant]

REACTIONS (3)
  - DRUG EFFECT DECREASED [None]
  - PHARMACEUTICAL PRODUCT COMPLAINT [None]
  - UNWANTED AWARENESS DURING ANAESTHESIA [None]
